FAERS Safety Report 25987350 (Version 1)
Quarter: 2025Q4

REPORT INFORMATION
  Report Type: Spontaneous
  Country: EU (occurrence: EU)
  Receive Date: 20251103
  Receipt Date: 20251103
  Transmission Date: 20260117
  Serious: No
  Sender: ALKEM
  Company Number: None

PATIENT
  Age: 67 Year
  Sex: Male
  Weight: 89 kg

DRUGS (1)
  1. IBUPROFEN [Suspect]
     Active Substance: IBUPROFEN
     Indication: Back pain
     Dosage: 1 DOSAGE FORM, QD (1 TOTAL)
     Route: 048
     Dates: start: 20241209

REACTIONS (2)
  - Pustule [Unknown]
  - Pruritus [Unknown]

NARRATIVE: CASE EVENT DATE: 20241209
